FAERS Safety Report 5259845-0 (Version None)
Quarter: 2007Q1

REPORT INFORMATION
  Report Type: 
  Country: None (occurrence: None)
  Receive Date: 20070309
  Receipt Date: 20070305
  Transmission Date: 20070707
  Serious: Yes (Hospitalization)
  Sender: FDA-Public Use
  Company Number: FR-AVENTIS-200710805FR

PATIENT
  Age: 44 Year
  Sex: Male

DRUGS (6)
  1. LOVENOX [Suspect]
     Route: 058
     Dates: start: 20061219, end: 20070124
  2. TRIATEC                            /00885601/ [Suspect]
     Route: 048
     Dates: start: 20070119, end: 20070124
  3. DEPAKENE [Suspect]
     Route: 048
     Dates: start: 20061219, end: 20070124
  4. TEMESTA                            /00273201/ [Suspect]
     Route: 048
     Dates: start: 20061219, end: 20070124
  5. NEXIUM [Suspect]
     Route: 048
     Dates: start: 20061219, end: 20070124
  6. LOXEN [Suspect]
     Route: 048
     Dates: start: 20061219, end: 20070124

REACTIONS (1)
  - AGRANULOCYTOSIS [None]
